FAERS Safety Report 22972677 (Version 3)
Quarter: 2025Q2

REPORT INFORMATION
  Report Type: Report from Study
  Country: CA (occurrence: CA)
  Receive Date: 20230922
  Receipt Date: 20250617
  Transmission Date: 20250717
  Serious: Yes (Other)
  Sender: TAKEDA
  Company Number: CA-TAKEDA-2023TUS092113

PATIENT
  Sex: Male
  Weight: 107 kg

DRUGS (6)
  1. VEDOLIZUMAB [Suspect]
     Active Substance: VEDOLIZUMAB
     Indication: Colitis ulcerative
  2. VEDOLIZUMAB [Suspect]
     Active Substance: VEDOLIZUMAB
     Indication: Colitis ulcerative
     Dosage: UNK UNK, Q2WEEKS
     Dates: start: 20220922
  3. PREDNISONE [Concomitant]
     Active Substance: PREDNISONE
  4. Salofalk [Concomitant]
     Dosage: 500 MILLIGRAM, BID
  5. IMURAN [Concomitant]
     Active Substance: AZATHIOPRINE
     Dosage: 15 MILLIGRAM, QD
  6. XELJANZ [Concomitant]
     Active Substance: TOFACITINIB CITRATE

REACTIONS (1)
  - Haematochezia [Unknown]
